FAERS Safety Report 9970037 (Version 1)
Quarter: 2014Q1

REPORT INFORMATION
  Report Type: Spontaneous
  Country: US (occurrence: US)
  Receive Date: 20140306
  Receipt Date: 20140306
  Transmission Date: 20141002
  Serious: No
  Sender: FDA-Public Use
  Company Number: US-TEVA-463054USA

PATIENT
  Age: 60 Year
  Sex: Male
  Weight: 136.2 kg

DRUGS (6)
  1. PROAIR HFA [Suspect]
     Indication: BRONCHITIS
     Dosage: 2 PUFFS EVERY 4-6 HRS AS NEEDED
     Route: 055
     Dates: start: 20140208
  2. XANAX [Concomitant]
  3. DIABETIC MEDICATION [Concomitant]
  4. CHOLESTEROL MEDICATION [Concomitant]
  5. THYROID MEDICATION [Concomitant]
  6. HYPERTESNION MEDICATION [Concomitant]

REACTIONS (4)
  - Dyspnoea [Not Recovered/Not Resolved]
  - Panic disorder [Not Recovered/Not Resolved]
  - Anxiety [Not Recovered/Not Resolved]
  - Nervousness [Not Recovered/Not Resolved]
